FAERS Safety Report 9025256 (Version 3)
Quarter: 2013Q1

REPORT INFORMATION
  Report Type: Other
  Country: GB (occurrence: GB)
  Receive Date: 20130122
  Receipt Date: 20130129
  Transmission Date: 20140127
  Serious: Yes (Hospitalization)
  Sender: FDA-Public Use
  Company Number: GB-WATSON-2013-00870

PATIENT
  Age: 55 Year
  Sex: Male

DRUGS (5)
  1. LAMOTRIGINE (UNKNOWN) [Suspect]
     Indication: EPILEPSY
     Dosage: 100 MG, DAILY
     Route: 048
  2. CLOMIPRAMINE HYDROCHLORIDE [Suspect]
     Indication: SCHIZOAFFECTIVE DISORDER
     Dosage: 50 MG, DAILY
     Route: 048
  3. CLOZARIL [Suspect]
     Indication: SCHIZOPHRENIA
     Dosage: 600 MG, DAILY
     Route: 048
     Dates: start: 20030918
  4. KEPPRA [Suspect]
     Indication: EPILEPSY
     Dosage: 1000 MG, UNKNOWN
     Route: 048
  5. HYOSCINE [Suspect]
     Indication: DROOLING
     Dosage: 300MCG DAILY
     Route: 048

REACTIONS (3)
  - Differential white blood cell count abnormal [Unknown]
  - Urinary tract infection [Recovered/Resolved]
  - White blood cell count increased [Recovered/Resolved]
